FAERS Safety Report 6189343-1 (Version None)
Quarter: 2009Q2

REPORT INFORMATION
  Report Type: 
  Country: None (occurrence: None)
  Receive Date: 20090512
  Receipt Date: 20090422
  Transmission Date: 20091009
  Serious: Yes (Death, Life-Threatening, Hospitalization, Other)
  Sender: FDA-Public Use
  Company Number: ADE# 09-135DPR

PATIENT
  Age: 86 Year
  Sex: Female

DRUGS (1)
  1. DIGOXIN [Suspect]

REACTIONS (5)
  - ADVERSE EVENT [None]
  - FALL [None]
  - GASTRIC ULCER [None]
  - HIP FRACTURE [None]
  - MENTAL DISORDER [None]
